FAERS Safety Report 6504506-0 (Version None)
Quarter: 2009Q4

REPORT INFORMATION
  Report Type: 
  Country: None (occurrence: None)
  Receive Date: 20091215
  Receipt Date: 20091210
  Transmission Date: 20100525
  Serious: Yes (Hospitalization)
  Sender: FDA-Public Use
  Company Number: 1000010706

PATIENT
  Age: 55 Year
  Sex: Male

DRUGS (8)
  1. BYSTOLIC [Suspect]
     Indication: BLOOD PRESSURE INCREASED
     Dosage: 5 MG (5 MG, 1 IN 1 D), ORAL
     Route: 048
  2. FEBUXOSTAT [Suspect]
     Indication: GOUT
     Dosage: 40 MG (40 MG, 1 IN 1 D), ORAL; 80 MG (80 MG, 1 IN 1 D), ORAL
     Route: 048
     Dates: start: 20090601, end: 20090712
  3. FEBUXOSTAT [Suspect]
     Indication: HYPERURICAEMIA
     Dosage: 40 MG (40 MG, 1 IN 1 D), ORAL; 80 MG (80 MG, 1 IN 1 D), ORAL
     Route: 048
     Dates: start: 20090601, end: 20090712
  4. FEBUXOSTAT [Suspect]
     Indication: GOUT
     Dosage: 40 MG (40 MG, 1 IN 1 D), ORAL; 80 MG (80 MG, 1 IN 1 D), ORAL
     Route: 048
     Dates: start: 20090713
  5. FEBUXOSTAT [Suspect]
     Indication: HYPERURICAEMIA
     Dosage: 40 MG (40 MG, 1 IN 1 D), ORAL; 80 MG (80 MG, 1 IN 1 D), ORAL
     Route: 048
     Dates: start: 20090713
  6. COLCHICINE [Concomitant]
  7. SIMVASTATIN [Concomitant]
  8. ASPIRIN [Concomitant]

REACTIONS (1)
  - CARDIAC FAILURE ACUTE [None]
